FAERS Safety Report 6971683-7 (Version None)
Quarter: 2010Q3

REPORT INFORMATION
  Report Type: 
  Country: None (occurrence: None)
  Receive Date: 20100908
  Receipt Date: 20091208
  Transmission Date: 20110219
  Serious: No
  Sender: FDA-Public Use
  Company Number: US-PFIZER INC-2009279549

PATIENT
  Sex: Female
  Weight: 77.1 kg

DRUGS (6)
  1. NARDIL [Suspect]
     Indication: MIGRAINE
     Dosage: UNK
     Route: 048
     Dates: start: 20060101
  2. NAMENDA [Suspect]
     Indication: MIGRAINE
     Dosage: UNK
  3. SYNTHROID [Concomitant]
  4. FUROSEMIDE [Concomitant]
  5. KLOR-CON [Concomitant]
     Dosage: 10 MEQ, 1X/DAY
  6. NADOLOL [Concomitant]
     Dosage: 20 MG, 1X/DAY

REACTIONS (5)
  - ABDOMINAL DISCOMFORT [None]
  - CRYING [None]
  - DEPRESSION [None]
  - DIARRHOEA [None]
  - NAUSEA [None]
